FAERS Safety Report 7163537 (Version 9)
Quarter: 2014Q1

REPORT INFORMATION
  Report Type: Report from Study
  Country: JP (occurrence: JP)
  Receive Date: 20091030
  Receipt Date: 20140113
  Transmission Date: 20141002
  Serious: Yes (Death, Hospitalization, Other)
  Sender: FDA-Public Use
  Company Number: JP-BAYER-200914144BYL

PATIENT
  Age: 60 Year
  Sex: Male
  Weight: 57 kg

DRUGS (6)
  1. NEXAVAR [Suspect]
     Indication: HEPATOCELLULAR CARCINOMA
     Dosage: 800 MG, QD
     Route: 048
     Dates: start: 20090722, end: 20091007
  2. NEXAVAR [Suspect]
     Indication: HEPATOCELLULAR CARCINOMA
     Dosage: 400 MG, QD
     Route: 048
     Dates: start: 20091111, end: 20091209
  3. CYTOTEC [Concomitant]
     Indication: GASTRIC ULCER
     Dosage: 200 MG, QD
     Route: 048
     Dates: end: 20091021
  4. FAMOTIDINE [Concomitant]
     Indication: GASTRIC ULCER
     Dosage: 40 MG, QD
     Route: 048
     Dates: end: 20090930
  5. UREPEARL [Concomitant]
     Indication: PROPHYLAXIS
     Dosage: 3 G, QD
     Route: 061
     Dates: start: 20090722
  6. TAKEPRON [Concomitant]
     Indication: GASTRIC ULCER
     Dosage: 15 MG, QD
     Route: 048
     Dates: start: 20090930, end: 20091021

REACTIONS (7)
  - Drug-induced liver injury [Recovered/Resolved]
  - Hepatic function abnormal [Recovering/Resolving]
  - Jaundice [Recovered/Resolved]
  - Palmar-plantar erythrodysaesthesia syndrome [Recovering/Resolving]
  - Hepatocellular carcinoma [Fatal]
  - Respiratory failure [Fatal]
  - Metastases to lung [Fatal]
